FAERS Safety Report 4738771-7 (Version None)
Quarter: 2005Q3

REPORT INFORMATION
  Report Type: 
  Country: None (occurrence: None)
  Receive Date: 20050804
  Receipt Date: 20050719
  Transmission Date: 20060218
  Serious: No
  Sender: FDA-Public Use
  Company Number: 2005BL004620

PATIENT
  Sex: Male

DRUGS (1)
  1. MINIMS FLUORESCEIN SODIUM 1% (FLUORESCEIN SODIUM) [Suspect]
     Indication: OPHTHALMOLOGICAL EXAMINATION
     Dosage: OPHTHALMIC
     Route: 047
     Dates: start: 20040623, end: 20040623

REACTIONS (6)
  - DIZZINESS [None]
  - EYE IRRITATION [None]
  - EYE PAIN [None]
  - INJURY [None]
  - LENS DISORDER [None]
  - PHARMACEUTICAL PRODUCT COMPLAINT [None]
